FAERS Safety Report 7940885-5 (Version None)
Quarter: 2011Q4

REPORT INFORMATION
  Report Type: 
  Country: None (occurrence: None)
  Receive Date: 20111128
  Receipt Date: 20111118
  Transmission Date: 20120403
  Serious: Yes (Hospitalization)
  Sender: FDA-Public Use
  Company Number: US-PFIZER INC-2011253753

PATIENT
  Sex: Female
  Weight: 62.3 kg

DRUGS (3)
  1. DOXORUBICIN HCL [Suspect]
     Indication: SARCOMA METASTATIC
     Dosage: 130 MG, UNK
     Dates: start: 20110628, end: 20110719
  2. PDGFRA [Suspect]
     Indication: SARCOMA METASTATIC
     Dosage: 1000 MG, UNK
     Dates: start: 20110809, end: 20110909
  3. DACARBAZINE [Concomitant]
     Dosage: UNK
     Dates: start: 20110923

REACTIONS (1)
  - DYSPNOEA [None]
